FAERS Safety Report 5489688-4 (Version None)
Quarter: 2007Q4

REPORT INFORMATION
  Report Type: 
  Country: None (occurrence: None)
  Receive Date: 20071010
  Receipt Date: 20070412
  Transmission Date: 20080405
  Serious: Yes (Other)
  Sender: FDA-Public Use
  Company Number: 2007SP006922

PATIENT
  Sex: Female

DRUGS (2)
  1. PROVENTIL-HFA [Suspect]
     Indication: DRUG USE FOR UNKNOWN INDICATION
     Dosage: PO
     Route: 048
  2. PROVENTIL [Concomitant]

REACTIONS (3)
  - BRONCHOSPASM [None]
  - HEART RATE INCREASED [None]
  - THERAPEUTIC PRODUCT INEFFECTIVE [None]
